FAERS Safety Report 7028650-7 (Version None)
Quarter: 2010Q3

REPORT INFORMATION
  Report Type: 
  Country: None (occurrence: None)
  Receive Date: 20100920
  Receipt Date: 20100907
  Transmission Date: 20110219
  Serious: Yes (Hospitalization)
  Sender: FDA-Public Use
  Company Number: WSDF_00673

PATIENT
  Sex: Female
  Weight: 12 kg

DRUGS (6)
  1. WINRHO SDF LIQUID [Suspect]
     Indication: IDIOPATHIC THROMBOCYTOPENIC PURPURA
     Dosage: (75 UG/KG INTRAVENOUS (NOT OTHERWISE SPECIFIED)
     Route: 042
     Dates: start: 20070815, end: 20070815
  2. BENADRYL [Concomitant]
  3. ZOFRAN [Concomitant]
  4. DECADRON [Concomitant]
  5. DEXTROSE 5% AND SODIUM CHLORIDE 0.45% IN PLASTIC CONTAINER [Concomitant]
  6. KCI [Concomitant]

REACTIONS (7)
  - CONTUSION [None]
  - GLUCOSE URINE PRESENT [None]
  - INTRAVASCULAR HAEMOLYSIS [None]
  - NAUSEA [None]
  - OVERDOSE [None]
  - TONGUE BLISTERING [None]
  - WHITE BLOOD CELL COUNT INCREASED [None]
